FAERS Safety Report 9129935 (Version 2)
Quarter: 2013Q1

REPORT INFORMATION
  Report Type: Report from Study
  Country: GB (occurrence: GB)
  Receive Date: 20130228
  Receipt Date: 20130306
  Transmission Date: 20140127
  Serious: Yes (Hospitalization)
  Sender: FDA-Public Use
  Company Number: GB-ROCHE-1193535

PATIENT
  Age: 67 Year
  Sex: Female
  Weight: 104.6 kg

DRUGS (4)
  1. ADO-TRASTUZUMAB EMTANSINE [Suspect]
     Indication: BREAST CANCER
     Dosage: DATE OF LAST DOSE OF T-DM1:15 FEB 2013
     Route: 042
     Dates: start: 20110708
  2. ATENOLOL [Concomitant]
     Indication: HYPERTENSION
     Route: 065
     Dates: start: 20110906
  3. CLOBETASONE [Concomitant]
     Indication: RASH
     Route: 065
     Dates: start: 20120316
  4. PLACEBO [Suspect]
     Indication: BREAST CANCER
     Dosage: DATE OF LAST DOSE OF PERTUZUMAB/PERTUZUMAB-PLACEBO: 15 FEB 2013
     Route: 042
     Dates: start: 20110708

REACTIONS (1)
  - Convulsion [Not Recovered/Not Resolved]
